FAERS Safety Report 4549295-4 (Version None)
Quarter: 2004Q4

REPORT INFORMATION
  Report Type: 
  Country: None (occurrence: None)
  Receive Date: 20041230
  Receipt Date: 20040614
  Transmission Date: 20050328
  Serious: Yes (Hospitalization)
  Sender: FDA-Public Use
  Company Number: 04-06-0849

PATIENT
  Age: 29 Year
  Sex: Male

DRUGS (1)
  1. CLOZAPINE [Suspect]
     Indication: SCHIZOPHRENIA
     Dosage: 600-550MG ORAL
     Route: 048
     Dates: start: 20020501, end: 20040501

REACTIONS (2)
  - DROOLING [None]
  - TREATMENT NONCOMPLIANCE [None]
